FAERS Safety Report 18792076 (Version 3)
Quarter: 2021Q2

REPORT INFORMATION
  Report Type: Report from Study
  Country: JP (occurrence: JP)
  Receive Date: 20210127
  Receipt Date: 20210528
  Transmission Date: 20210717
  Serious: Yes (Death, Hospitalization)
  Sender: FDA-Public Use
  Company Number: JP-ROCHE-2681136

PATIENT
  Age: 79 Year
  Sex: Male
  Weight: 54 kg

DRUGS (24)
  1. SOLACET F [Concomitant]
     Active Substance: CALCIUM CHLORIDE\POTASSIUM CHLORIDE\SODIUM ACETATE\SODIUM CHLORIDE
     Dates: start: 20201029, end: 20201029
  2. PLACEBO [Suspect]
     Active Substance: UNSPECIFIED INGREDIENT
     Indication: NON-SMALL CELL LUNG CANCER
     Dosage: ON DAY 1 OF EACH 21 DAY CYCLE, START DATE OF MOST RECENT DOSE PRIOR TO SAE: 04/SEP/2020 (600 MG)
     Route: 042
     Dates: start: 20200904
  3. SOLULACT [Concomitant]
     Active Substance: CALCIUM CHLORIDE\POTASSIUM CHLORIDE\SODIUM CHLORIDE\SODIUM LACTATE
     Indication: FLUID REPLACEMENT
     Dates: start: 20200917, end: 20200922
  4. GLYCYRON [Concomitant]
     Indication: ASPARTATE AMINOTRANSFERASE INCREASED
     Route: 048
     Dates: start: 20201016, end: 20201022
  5. MICONAZOLE. [Concomitant]
     Active Substance: MICONAZOLE
     Indication: ORAL CANDIDIASIS
     Dosage: 1 OTHER
     Route: 061
     Dates: start: 20201210, end: 20201224
  6. SODIUM CHLORIDE. [Concomitant]
     Active Substance: SODIUM CHLORIDE
     Indication: FLUID REPLACEMENT
     Dates: start: 20201127, end: 20201127
  7. SOLDEM 3A [Concomitant]
     Active Substance: CARBOHYDRATES\POTASSIUM CHLORIDE\SODIUM CHLORIDE\SODIUM LACTATE
     Indication: FLUID REPLACEMENT
     Dates: start: 20201212, end: 20201224
  8. ATEZOLIZUMAB. [Suspect]
     Active Substance: ATEZOLIZUMAB
     Indication: NON-SMALL CELL LUNG CANCER
     Dosage: INTRAVENOUS (IV) INFUSION Q3W ON DAY 1 OF EACH 21?DAY CYCLE.?START DATE OF MOST RECENT DOSE OF STUDY
     Route: 042
     Dates: start: 20200904
  9. DAIPHEN [Concomitant]
     Active Substance: SULFAMETHOXAZOLE\TRIMETHOPRIM
     Dates: start: 20201218, end: 20210104
  10. CARBAZOCHROME SODIUM SULFONATE [Concomitant]
     Active Substance: CARBAZOCHROME SODIUM SULFONATE
     Dates: start: 20201029, end: 20201029
  11. ISOTONIC SODIUM CHLORIDE SOLUTION [Concomitant]
     Active Substance: SODIUM CHLORIDE
     Dates: start: 20201029, end: 20201104
  12. D?CHLORPHENIRAMINE MALEATE [Concomitant]
     Active Substance: DEXCHLORPHENIRAMINE MALEATE
     Indication: RASH
     Dates: start: 20201127, end: 20201127
  13. HEPARINOID [Concomitant]
     Active Substance: CHONDROITIN SULFATE (BOVINE)
     Dates: start: 20210104
  14. LANSOPRAZOLE. [Concomitant]
     Active Substance: LANSOPRAZOLE
     Dates: start: 20201103, end: 20201229
  15. REBAMIPIDE [Concomitant]
     Active Substance: REBAMIPIDE
     Dates: start: 20201109, end: 20201125
  16. ISOTONIC SODIUM CHLORIDE SOLUTION [Concomitant]
     Active Substance: SODIUM CHLORIDE
     Dates: start: 20201202, end: 20210103
  17. VITAMEDIN (JAPAN) [Concomitant]
     Dates: start: 20201117, end: 20210103
  18. GLYCYRON [Concomitant]
     Indication: ALANINE AMINOTRANSFERASE INCREASED
  19. RABEPRAZOLE SODIUM. [Concomitant]
     Active Substance: RABEPRAZOLE SODIUM
     Dates: start: 20201229
  20. ANORO ELLIPTA [Concomitant]
     Active Substance: UMECLIDINIUM BROMIDE\VILANTEROL TRIFENATATE
     Indication: CHRONIC OBSTRUCTIVE PULMONARY DISEASE
     Dosage: 30 DOSES
     Dates: start: 202006
  21. POTASSIUM CHLORIDE. [Concomitant]
     Active Substance: POTASSIUM CHLORIDE
     Indication: FLUID REPLACEMENT
     Dates: start: 20200920, end: 20200924
  22. POTASSIUM CHLORIDE. [Concomitant]
     Active Substance: POTASSIUM CHLORIDE
     Dates: start: 20201214, end: 20210103
  23. FOLIC ACID. [Concomitant]
     Active Substance: FOLIC ACID
     Dates: start: 20201225, end: 20210104
  24. BISOPROLOL [Concomitant]
     Active Substance: BISOPROLOL
     Indication: SINUS TACHYCARDIA
     Dosage: 1 OTHER
     Route: 062
     Dates: start: 20201212

REACTIONS (3)
  - Myasthenia gravis [Fatal]
  - Influenza like illness [Recovered/Resolved]
  - Myositis [Unknown]

NARRATIVE: CASE EVENT DATE: 20200914
